FAERS Safety Report 10202524 (Version 1)
Quarter: 2014Q2

REPORT INFORMATION
  Report Type: Spontaneous
  Country: IR (occurrence: IR)
  Receive Date: 20140528
  Receipt Date: 20140528
  Transmission Date: 20141212
  Serious: Yes (Other)
  Sender: FDA-Public Use
  Company Number: PHHY2014IR064182

PATIENT
  Age: 61 Year
  Sex: Male

DRUGS (14)
  1. GLIVEC [Suspect]
     Indication: CHRONIC MYELOID LEUKAEMIA
     Dosage: 200 MG, DAILY
  2. CICLOSPORIN [Interacting]
     Indication: RENAL TRANSPLANT
     Dosage: 6 MG/KG, DAILY
  3. CICLOSPORIN [Interacting]
     Dosage: 2.6 MG/KG, PER DAY
  4. CICLOSPORIN [Interacting]
     Dosage: 200 MG, DAILY (2.2 MG/KG)
  5. CICLOSPORIN [Interacting]
     Dosage: 1.7 MG/KG, PER DAY
  6. CICLOSPORIN [Interacting]
     Dosage: 1.14 MG/KG, PER DAY
  7. CICLOSPORIN [Interacting]
     Dosage: 1.1 MG/KG, PER DAY
  8. CICLOSPORIN [Interacting]
     Dosage: 75 MG, BID
  9. CICLOSPORIN [Interacting]
     Dosage: 50 MG, BID
  10. MYCOPHENOLATE MOFETIL [Suspect]
     Indication: RENAL TRANSPLANT
     Dosage: 2000 MG, DAILY
  11. MYCOPHENOLATE MOFETIL [Suspect]
     Dosage: 1.5 G, DAILY
  12. PREDNISOLONE [Suspect]
     Indication: RENAL TRANSPLANT
     Dosage: 1 MG/KG, DAILY
  13. PREDNISOLONE [Suspect]
     Dosage: 5 MG, DAILY
  14. METHYLPREDNISOLONE [Concomitant]
     Indication: RENAL TRANSPLANT
     Dosage: 1000 MG, DAILY

REACTIONS (4)
  - Chronic myeloid leukaemia [Unknown]
  - Blood creatinine increased [Recovered/Resolved]
  - Haemoglobin decreased [Recovering/Resolving]
  - Drug interaction [Unknown]
